FAERS Safety Report 23479716 (Version 1)
Quarter: 2024Q1

REPORT INFORMATION
  Report Type: Spontaneous
  Country: US (occurrence: US)
  Receive Date: 20240205
  Receipt Date: 20240205
  Transmission Date: 20240410
  Serious: No
  Sender: FDA-Public Use
  Company Number: US-UCBSA-2023019827

PATIENT
  Age: 15 Year
  Sex: Male

DRUGS (3)
  1. LEVETIRACETAM [Suspect]
     Active Substance: LEVETIRACETAM
     Indication: Seizure
     Dosage: UNK
  2. LORAZEPAM [Suspect]
     Active Substance: LORAZEPAM
     Indication: Seizure
     Dosage: 3 MILLIGRAM Q4H
  3. LORAZEPAM [Suspect]
     Active Substance: LORAZEPAM
     Indication: Agitation

REACTIONS (5)
  - Mental disorder [Unknown]
  - Aphasia [Unknown]
  - Dysphagia [Unknown]
  - Disorientation [Unknown]
  - Perseveration [Unknown]
